FAERS Safety Report 7067733-2 (Version None)
Quarter: 2010Q4

REPORT INFORMATION
  Report Type: 
  Country: None (occurrence: None)
  Receive Date: 20101028
  Receipt Date: 20101018
  Transmission Date: 20110411
  Serious: Yes (Death, Hospitalization)
  Sender: FDA-Public Use
  Company Number: US-BAXTER-2010BH024725

PATIENT
  Age: 70 Year
  Sex: Female

DRUGS (2)
  1. DIANEAL [Suspect]
     Indication: PERITONEAL DIALYSIS
     Route: 033
     Dates: end: 20100929
  2. DIANEAL [Suspect]
     Indication: PERITONEAL DIALYSIS
     Route: 033
     Dates: end: 20100929

REACTIONS (7)
  - CARDIAC ARREST [None]
  - CELLULITIS [None]
  - GANGRENE [None]
  - GASTROENTERITIS VIRAL [None]
  - KLEBSIELLA INFECTION [None]
  - PERITONITIS BACTERIAL [None]
  - WRONG TECHNIQUE IN DRUG USAGE PROCESS [None]
